FAERS Safety Report 6331634-5 (Version None)
Quarter: 2009Q3

REPORT INFORMATION
  Report Type: 
  Country: None (occurrence: None)
  Receive Date: 20090827
  Receipt Date: 20090819
  Transmission Date: 20100115
  Serious: Yes (Other)
  Sender: FDA-Public Use
  Company Number: PHHY2009CL35326

PATIENT
  Age: 79 Year
  Sex: Female

DRUGS (1)
  1. TAREG [Suspect]
     Dosage: UNK
     Dates: start: 20090601

REACTIONS (3)
  - EYELID TUMOUR [None]
  - NEOPLASM MALIGNANT [None]
  - SURGERY [None]
